FAERS Safety Report 19208138 (Version 1)
Quarter: 2021Q2

REPORT INFORMATION
  Report Type: Spontaneous
  Country: SE (occurrence: SE)
  Receive Date: 20210503
  Receipt Date: 20210503
  Transmission Date: 20210717
  Serious: Yes (Hospitalization)
  Sender: FDA-Public Use
  Company Number: SE-PURDUE-USA-2021-0252054

PATIENT
  Age: 78 Year
  Sex: Female

DRUGS (10)
  1. BUPRENORPHINE. [Concomitant]
     Active Substance: BUPRENORPHINE
     Dosage: UNK [STYRKA 10 G/H, 1 PLASTER+ 1 TILL EFTER 3 DAGAR]
     Dates: start: 20210329
  2. ZOLPIDEM [Concomitant]
     Active Substance: ZOLPIDEM TARTRATE
     Dosage: UNK UNK, DAILY [0,5?1 TABLETT/DAG]
     Dates: start: 20190524
  3. OXYCODONE HYDROCHLORIDE. [Suspect]
     Active Substance: OXYCODONE HYDROCHLORIDE
     Indication: PAIN
     Dosage: 10 MG, DAILY
     Route: 065
     Dates: start: 20210321
  4. INOLAXOL                           /00561902/ [Concomitant]
     Dosage: 1 UNIT, DAILY
     Dates: start: 20200508
  5. ALVEDON [Concomitant]
     Active Substance: ACETAMINOPHEN
     Dosage: 4000 MG, DAILY
     Dates: start: 20190708
  6. XARELTO [Concomitant]
     Active Substance: RIVAROXABAN
     Dosage: 20 MG, DAILY
     Dates: start: 20180125
  7. CALCICHEW D3 CITRON                /00944201/ [Concomitant]
     Dosage: 1 UNIT, DAILY
     Dates: start: 20210329
  8. ROSUVASTATIN. [Concomitant]
     Active Substance: ROSUVASTATIN
     Dosage: 40 MG, DAILY
     Dates: start: 20190213
  9. BISOSTAD                           /00802602/ [Concomitant]
     Active Substance: BISOPROLOL FUMARATE
     Dosage: UNK UNK, DAILY [0,5+1 TABLETT]
     Dates: start: 20180124
  10. ZOLEDRONIC ACID [Concomitant]
     Active Substance: ZOLEDRONIC ACID
     Dosage: UNK [100 ML SOM INFUSION UNDER 15 MINUTER 1 GANG PER AR I 3AR] [1 YEAR]
     Route: 042
     Dates: start: 20210325

REACTIONS (3)
  - Overdose [Recovering/Resolving]
  - Personality change [Recovering/Resolving]
  - Somnolence [Recovering/Resolving]

NARRATIVE: CASE EVENT DATE: 20210401
